FAERS Safety Report 6088239-3 (Version None)
Quarter: 2009Q1

REPORT INFORMATION
  Report Type: 
  Country: None (occurrence: None)
  Receive Date: 20090224
  Receipt Date: 20090123
  Transmission Date: 20090719
  Serious: No
  Sender: FDA-Public Use
  Company Number: US-BAYER-200910294BCC

PATIENT
  Sex: Female

DRUGS (2)
  1. ALEVE [Suspect]
     Indication: PAIN IN EXTREMITY
  2. MOTRIN [Concomitant]

REACTIONS (2)
  - ARTHRALGIA [None]
  - PAIN IN EXTREMITY [None]
